FAERS Safety Report 12444897 (Version 2)
Quarter: 2016Q3

REPORT INFORMATION
  Report Type: Spontaneous
  Country: US (occurrence: US)
  Receive Date: 20160607
  Receipt Date: 20160708
  Transmission Date: 20161109
  Serious: No
  Sender: FDA-Public Use
  Company Number: US-PFIZER INC-2016283951

PATIENT
  Sex: Female

DRUGS (1)
  1. CIPROFLOXACIN. [Suspect]
     Active Substance: CIPROFLOXACIN
     Dosage: UNK
     Dates: start: 201511, end: 201511

REACTIONS (4)
  - Muscle spasms [Unknown]
  - Poor quality sleep [Unknown]
  - Drug hypersensitivity [Unknown]
  - Palpitations [Unknown]
